FAERS Safety Report 9961859 (Version 1)
Quarter: 2014Q1

REPORT INFORMATION
  Report Type: Spontaneous
  Country: DE (occurrence: DE)
  Receive Date: 20140305
  Receipt Date: 20140305
  Transmission Date: 20141002
  Serious: Yes (Congenital Anomaly)
  Sender: FDA-Public Use
  Company Number: DE-TEVA-465128GER

PATIENT
  Age: 1 Day
  Sex: Male

DRUGS (6)
  1. METOPROLOL [Suspect]
     Route: 064
  2. BISOPROLOL [Concomitant]
     Route: 064
  3. INSULIN [Concomitant]
     Route: 064
  4. FOLIO [Concomitant]
     Route: 064
  5. DOPEGYT [Concomitant]
     Route: 064
  6. ASS 100 [Concomitant]
     Route: 064

REACTIONS (2)
  - Congenital hydronephrosis [Not Recovered/Not Resolved]
  - Ureteric stenosis [Not Recovered/Not Resolved]
